FAERS Safety Report 10750784 (Version 4)
Quarter: 2015Q3

REPORT INFORMATION
  Report Type: Spontaneous
  Country: US (occurrence: US)
  Receive Date: 20150130
  Receipt Date: 20150707
  Transmission Date: 20151125
  Serious: Yes (Other)
  Sender: FDA-Public Use
  Company Number: US-BAYER-2015-013805

PATIENT
  Age: 31 Year
  Sex: Female
  Weight: 56.69 kg

DRUGS (6)
  1. WELLBUTRIN [Concomitant]
     Active Substance: BUPROPION HYDROCHLORIDE
     Dosage: 75 MG, UNK
  2. PRISTIQ EXTENDED RELEASE [Concomitant]
     Active Substance: DESVENLAFAXINE SUCCINATE
     Indication: DEPRESSION
     Dosage: 50 MG, UNK
     Dates: start: 2010, end: 2014
  3. MIRENA [Suspect]
     Active Substance: LEVONORGESTREL
     Indication: CONTRACEPTION
     Dosage: 20 MCG/24HR, CONT
     Route: 015
     Dates: start: 20120313, end: 20130315
  4. LAMICTAL [Concomitant]
     Active Substance: LAMOTRIGINE
     Indication: BIPOLAR DISORDER
     Dosage: UNK
     Dates: start: 2010
  5. TOPAMAX [Concomitant]
     Active Substance: TOPIRAMATE
     Indication: HEADACHE
     Dosage: 25 MG, UNK
     Dates: start: 2012
  6. TOPAMAX [Concomitant]
     Active Substance: TOPIRAMATE
     Indication: BINGE EATING

REACTIONS (12)
  - Uterine perforation [None]
  - Pain [None]
  - Device dislocation [None]
  - Anxiety [None]
  - Fear of pregnancy [None]
  - Abdominal pain upper [None]
  - Abdominal pain lower [None]
  - Injury [None]
  - Device issue [None]
  - Device breakage [None]
  - Emotional distress [None]
  - Scar [None]

NARRATIVE: CASE EVENT DATE: 20120313
